FAERS Safety Report 6653682-8 (Version None)
Quarter: 2010Q1

REPORT INFORMATION
  Report Type: 
  Country: None (occurrence: None)
  Receive Date: 20100326
  Receipt Date: 20100323
  Transmission Date: 20100710
  Serious: Yes (Hospitalization)
  Sender: FDA-Public Use
  Company Number: US-MERCK-1003USA01350

PATIENT
  Age: 43 Year
  Sex: Female

DRUGS (1)
  1. FOSAMAX [Suspect]
     Indication: OSTEOPOROSIS
     Route: 048
     Dates: start: 19960101, end: 20060101

REACTIONS (4)
  - DRUG INEFFECTIVE [None]
  - FEMUR FRACTURE [None]
  - HIP FRACTURE [None]
  - VOMITING [None]
